FAERS Safety Report 16957294 (Version 4)
Quarter: 2019Q4

REPORT INFORMATION
  Report Type: Spontaneous
  Country: US (occurrence: US)
  Receive Date: 20191024
  Receipt Date: 20191202
  Transmission Date: 20200122
  Serious: No
  Sender: FDA-Public Use
  Company Number: US-PFIZER INC-2019458242

PATIENT
  Age: 70 Year
  Sex: Male
  Weight: 66 kg

DRUGS (7)
  1. NABUMETONE. [Concomitant]
     Active Substance: NABUMETONE
     Dosage: 1500 MG, UNK
  2. XELJANZ [Suspect]
     Active Substance: TOFACITINIB CITRATE
     Indication: RHEUMATOID ARTHRITIS
     Dosage: 5 MG, 2X/DAY
     Dates: start: 20190930, end: 20191021
  3. METHOTREXATE. [Concomitant]
     Active Substance: METHOTREXATE
     Dosage: 20 MG, UNK
  4. FOLIC ACID. [Concomitant]
     Active Substance: FOLIC ACID
     Dosage: 1500 MG, UNK
  5. JALYN [Concomitant]
     Active Substance: DUTASTERIDE\TAMSULOSIN HYDROCHLORIDE
     Dosage: UNK
  6. NEXIUM [Concomitant]
     Active Substance: ESOMEPRAZOLE MAGNESIUM
     Dosage: UNK
  7. PREDNISONE. [Concomitant]
     Active Substance: PREDNISONE
     Dosage: 12.5 MG, UNK

REACTIONS (12)
  - Tongue discomfort [Unknown]
  - Stomatitis [Not Recovered/Not Resolved]
  - Oral pruritus [Unknown]
  - Swollen tongue [Unknown]
  - Cheilitis [Not Recovered/Not Resolved]
  - Tongue pruritus [Unknown]
  - Lip pruritus [Unknown]
  - Drug hypersensitivity [Unknown]
  - Oral discomfort [Unknown]
  - Mouth swelling [Unknown]
  - Glossitis [Unknown]
  - Lip swelling [Unknown]

NARRATIVE: CASE EVENT DATE: 2019
